FAERS Safety Report 6236769-3 (Version None)
Quarter: 2009Q2

REPORT INFORMATION
  Report Type: 
  Country: None (occurrence: None)
  Receive Date: 20090619
  Receipt Date: 20090617
  Transmission Date: 20091009
  Serious: Yes (Death, Hospitalization, Other)
  Sender: FDA-Public Use
  Company Number: PHHY2009BR24177

PATIENT
  Sex: Male

DRUGS (7)
  1. FORASEQ [Suspect]
     Indication: EMPHYSEMA
     Dosage: 12/400 MCG EVERY 12 HOURS
     Dates: start: 20070101
  2. CLOPIDOGREL [Concomitant]
     Dosage: UNK ONCE DAILY,
     Route: 048
  3. AAS [Concomitant]
     Dosage: AT LUNCH
     Route: 048
  4. CAPTOPRIL [Concomitant]
     Dosage: ONCE A DAY
     Route: 048
  5. PROSCAR [Concomitant]
     Route: 048
  6. LASIX [Concomitant]
     Route: 048
  7. SIMVASTATIN [Concomitant]
     Route: 048

REACTIONS (6)
  - CHOKING [None]
  - COMA [None]
  - COUGH [None]
  - DYSPNOEA [None]
  - ENDOTRACHEAL INTUBATION [None]
  - RESPIRATORY FAILURE [None]
